FAERS Safety Report 5246471-2 (Version None)
Quarter: 2007Q1

REPORT INFORMATION
  Report Type: 
  Country: None (occurrence: None)
  Receive Date: 20070226
  Receipt Date: 20070215
  Transmission Date: 20070707
  Serious: Yes (Other)
  Sender: FDA-Public Use
  Company Number: GB-BRISTOL-MYERS SQUIBB COMPANY-13683826

PATIENT
  Sex: Male

DRUGS (1)
  1. MITOMYCIN-C BULK POWDER [Suspect]
     Route: 043

REACTIONS (3)
  - BONE MARROW FAILURE [None]
  - PANCYTOPENIA [None]
  - SCROTAL GANGRENE [None]
